FAERS Safety Report 20878582 (Version 2)
Quarter: 2022Q2

REPORT INFORMATION
  Report Type: Spontaneous
  Country: CZ (occurrence: CZ)
  Receive Date: 20220526
  Receipt Date: 20220610
  Transmission Date: 20220721
  Serious: Yes (Other)
  Sender: FDA-Public Use
  Company Number: CZ-BAYER-2022A071342

PATIENT
  Age: 30 Year
  Sex: Female

DRUGS (1)
  1. MIRENA [Suspect]
     Active Substance: LEVONORGESTREL
     Indication: Contraception
     Dosage: 20?G/DAY
     Route: 015
     Dates: start: 202012, end: 20220401

REACTIONS (13)
  - Kidney infection [None]
  - Autoimmune thyroid disorder [Recovered/Resolved]
  - Hypothyroidism [Recovered/Resolved]
  - Urinary tract infection [Recovered/Resolved]
  - Depression [Recovered/Resolved]
  - Fatigue [Recovered/Resolved]
  - Apathy [Recovered/Resolved]
  - Decreased appetite [Recovered/Resolved]
  - Loss of libido [Recovered/Resolved]
  - Feeling abnormal [Recovered/Resolved]
  - Amenorrhoea [Not Recovered/Not Resolved]
  - Procedural pain [Recovered/Resolved]
  - Hypohidrosis [Recovered/Resolved]

NARRATIVE: CASE EVENT DATE: 20201201
